FAERS Safety Report 9140111 (Version 2)
Quarter: 2013Q2

REPORT INFORMATION
  Report Type: Spontaneous
  Country: US (occurrence: US)
  Receive Date: 20130305
  Receipt Date: 20130405
  Transmission Date: 20140414
  Serious: No
  Sender: FDA-Public Use
  Company Number: US-PFIZER INC-2013074934

PATIENT
  Age: 67 Year
  Sex: Female
  Weight: 88.44 kg

DRUGS (5)
  1. LYRICA [Suspect]
     Indication: FIBROMYALGIA
     Dosage: 150 MG IN THE MORNING, 75 MG IN THE AFTERNOON AND 150 MG AT NIGHT
     Dates: start: 2011, end: 201209
  2. LYRICA [Suspect]
     Dosage: 150 MG IN THE MORNING, 75 MG IN THE AFTERNOON AND 150 MG AT NIGHT
     Dates: start: 2012, end: 201301
  3. HYDROCODONE [Concomitant]
     Indication: BACK PAIN
     Dosage: ^10/325^MG, AS NEEDED
  4. ADVIL [Concomitant]
     Indication: BACK PAIN
     Dosage: 200 MG, 2X/DAY
  5. CRESTOR [Concomitant]
     Indication: BLOOD CHOLESTEROL ABNORMAL
     Dosage: 10 MG, 1X/DAY

REACTIONS (3)
  - Pain [Not Recovered/Not Resolved]
  - Drug withdrawal syndrome [Not Recovered/Not Resolved]
  - Hyperhidrosis [Not Recovered/Not Resolved]
